FAERS Safety Report 23176186 (Version 1)
Quarter: 2023Q4

REPORT INFORMATION
  Report Type: Spontaneous
  Country: FR (occurrence: FR)
  Receive Date: 20231113
  Receipt Date: 20231113
  Transmission Date: 20240110
  Serious: Yes (Other)
  Sender: FDA-Public Use
  Company Number: FR-ABBVIE-5491224

PATIENT
  Age: 42 Year
  Sex: Male

DRUGS (1)
  1. RINVOQ [Suspect]
     Active Substance: UPADACITINIB
     Indication: Product used for unknown indication
     Route: 048
     Dates: start: 202302, end: 202310

REACTIONS (4)
  - Ulcerative keratitis [Unknown]
  - Papilloma viral infection [Unknown]
  - Lymphopenia [Unknown]
  - Herpes ophthalmic [Unknown]

NARRATIVE: CASE EVENT DATE: 20230101
